FAERS Safety Report 4529540-1 (Version None)
Quarter: 2004Q4

REPORT INFORMATION
  Report Type: 
  Country: None (occurrence: None)
  Receive Date: 20041214
  Receipt Date: 20040903
  Transmission Date: 20050328
  Serious: Yes (Hospitalization)
  Sender: FDA-Public Use
  Company Number: US-JNJFOC-20040902429

PATIENT
  Age: 75 Year
  Sex: Male

DRUGS (3)
  1. TYLENOL 8 HOUR EXTENDED RELEASE (ACETAMINOPHEN) GELTABS [Suspect]
     Indication: PAIN
     Dosage: 650 MG, 1 IN 1 DAY
     Dates: start: 20040902, end: 20040902
  2. TYLENOL 8 HOUR EXTENDED RELEASE (ACETAMINOPHEN) GELTABS [Suspect]
     Indication: PAIN
     Dosage: 650 MG, 1 IN 1 DAY
     Dates: start: 20040903
  3. UNSPECIFIED MEDICATION (ALL OTHER THERAPEUTIC PRODUCTS) [Concomitant]

REACTIONS (4)
  - CHOLECYSTECTOMY [None]
  - DRUG INEFFECTIVE [None]
  - PAIN EXACERBATED [None]
  - VOMITING [None]
